FAERS Safety Report 5387047-6 (Version None)
Quarter: 2007Q3

REPORT INFORMATION
  Report Type: 
  Country: None (occurrence: None)
  Receive Date: 20070713
  Receipt Date: 20070704
  Transmission Date: 20080115
  Serious: Yes (Hospitalization, Disabling)
  Sender: FDA-Public Use
  Company Number: FR-ABBOTT-07P-056-0372209-00

PATIENT
  Age: 56 Year
  Sex: Male
  Weight: 75 kg

DRUGS (4)
  1. KALETRA [Suspect]
     Indication: HIV INFECTION
     Route: 048
     Dates: start: 20070116
  2. TRUVADA [Suspect]
     Indication: HIV INFECTION
     Route: 048
     Dates: start: 20070116
  3. PIOGLITAZONE [Concomitant]
     Indication: DIABETES MELLITUS
     Dates: start: 20060101
  4. FENOFIBRATE [Concomitant]
     Indication: DYSLIPIDAEMIA
     Dates: start: 20030101

REACTIONS (9)
  - CAROTID ARTERY STENOSIS [None]
  - CEREBROVASCULAR ACCIDENT [None]
  - COORDINATION ABNORMAL [None]
  - DIZZINESS [None]
  - DYSARTHRIA [None]
  - EYELID PTOSIS [None]
  - HEMIPARESIS [None]
  - LIPIDS INCREASED [None]
  - UNEVALUABLE EVENT [None]
